FAERS Safety Report 16524641 (Version 1)
Quarter: 2019Q3

REPORT INFORMATION
  Report Type: Spontaneous
  Country: US (occurrence: US)
  Receive Date: 20190522
  Receipt Date: 20190522
  Transmission Date: 20191004
  Serious: Yes (Hospitalization)
  Sender: FDA-Public Use
  Company Number: None

PATIENT
  Age: 58 Year
  Sex: Female

DRUGS (16)
  1. METHOTREXATE. [Concomitant]
     Active Substance: METHOTREXATE
  2. POTASSIUM [Concomitant]
     Active Substance: POTASSIUM
  3. LISINOPRIL. [Concomitant]
     Active Substance: LISINOPRIL
  4. STOOL SOFTNR [Concomitant]
  5. CRESTOR [Concomitant]
     Active Substance: ROSUVASTATIN CALCIUM
  6. CELECOXIB. [Concomitant]
     Active Substance: CELECOXIB
  7. LISINOPRIL AND HYDROCHLOROTHIAZIDE [Concomitant]
     Active Substance: HYDROCHLOROTHIAZIDE\LISINOPRIL
  8. FLUTICASONE. [Concomitant]
     Active Substance: FLUTICASONE
  9. LANSOPRAZOLE. [Concomitant]
     Active Substance: LANSOPRAZOLE
  10. POT CL MICRO [Concomitant]
  11. ROSUVASTATIN. [Concomitant]
     Active Substance: ROSUVASTATIN
  12. TOLTERODINE [Concomitant]
     Active Substance: TOLTERODINE
  13. OXYBUTININ [Concomitant]
     Active Substance: OXYBUTYNIN
  14. TRAMADOL HCL [Concomitant]
     Active Substance: TRAMADOL HYDROCHLORIDE
  15. DOK [Concomitant]
     Active Substance: DOCUSATE SODIUM
  16. COSENTYX [Suspect]
     Active Substance: SECUKINUMAB
     Indication: PSORIATIC ARTHROPATHY
     Route: 058
     Dates: start: 20180215

REACTIONS (1)
  - Surgery [None]

NARRATIVE: CASE EVENT DATE: 201905
